FAERS Safety Report 4957301-8 (Version None)
Quarter: 2006Q1

REPORT INFORMATION
  Report Type: 
  Country: None (occurrence: None)
  Receive Date: 20060323
  Receipt Date: 20060309
  Transmission Date: 20060701
  Serious: Yes (Death, Other)
  Sender: FDA-Public Use
  Company Number: USA-2006-0023791

PATIENT
  Age: 78 Year
  Sex: Male

DRUGS (1)
  1. OXYCONTIN   CR                 (OXYCODONE HYDROCHLORIDE) CR [Suspect]
     Indication: PAIN
     Dosage: MG,

REACTIONS (2)
  - MALIGNANT NEOPLASM PROGRESSION [None]
  - OVERDOSE [None]
